FAERS Safety Report 20802434 (Version 1)
Quarter: 2022Q2

REPORT INFORMATION
  Report Type: Spontaneous
  Country: US (occurrence: None)
  Receive Date: 20220509
  Receipt Date: 20220509
  Transmission Date: 20220721
  Serious: No
  Sender: FDA-Public Use
  Company Number: None

PATIENT
  Age: 74 Year
  Sex: Male

DRUGS (1)
  1. ASPIRIN [Suspect]
     Active Substance: ASPIRIN
     Indication: Anticoagulant therapy
     Dosage: FREQUENCY : DAILY;?
     Route: 048
     Dates: start: 20111220, end: 20220118

REACTIONS (2)
  - Gastric haemorrhage [None]
  - Therapy cessation [None]

NARRATIVE: CASE EVENT DATE: 20220118
